FAERS Safety Report 5154631-4 (Version None)
Quarter: 2006Q4

REPORT INFORMATION
  Report Type: 
  Country: None (occurrence: None)
  Receive Date: 20061113
  Receipt Date: 20061101
  Transmission Date: 20070319
  Serious: Yes (Hospitalization)
  Sender: FDA-Public Use
  Company Number: 2006128994

PATIENT
  Age: 35 Year
  Sex: Female
  Weight: 89 kg

DRUGS (5)
  1. ZOLOFT [Suspect]
     Indication: MAJOR DEPRESSION
     Dosage: 25 MG (25 MG, 1 IN 1 D), ORAL
     Route: 048
     Dates: start: 20060912
  2. ZOLOFT [Suspect]
     Indication: PANIC DISORDER
     Dosage: 25 MG (25 MG, 1 IN 1 D), ORAL
     Route: 048
     Dates: start: 20060912
  3. PAXIL [Concomitant]
  4. MIELAX (ETHYL LOFLAZEPATE) [Concomitant]
  5. SEROQUEL [Concomitant]

REACTIONS (4)
  - ENTEROCOLITIS [None]
  - GASTROENTERITIS [None]
  - HAEMATOCHEZIA [None]
  - HAEMORRHOIDS [None]
